FAERS Safety Report 5602591-1 (Version None)
Quarter: 2008Q1

REPORT INFORMATION
  Report Type: 
  Country: None (occurrence: None)
  Receive Date: 20080125
  Receipt Date: 20080117
  Transmission Date: 20080703
  Serious: Yes (Other)
  Sender: FDA-Public Use
  Company Number: BR-ASTRAZENECA-2008UW01609

PATIENT
  Age: 82 Year
  Sex: Female

DRUGS (3)
  1. TAMOXIFEN [Suspect]
     Indication: BREAST CANCER FEMALE
     Route: 048
     Dates: start: 20030101, end: 20070101
  2. UNSPECIFIED [Concomitant]
     Indication: HYPERTENSION
     Route: 048
     Dates: start: 19790101
  3. UNSPECIFIED [Concomitant]
     Indication: ANGINA UNSTABLE
     Route: 048
     Dates: start: 19790101

REACTIONS (2)
  - METASTATIC NEOPLASM [None]
  - RECTAL POLYP [None]
